FAERS Safety Report 17888482 (Version 1)
Quarter: 2020Q2

REPORT INFORMATION
  Report Type: Spontaneous
  Country: RO (occurrence: RO)
  Receive Date: 20200612
  Receipt Date: 20200612
  Transmission Date: 20200714
  Serious: Yes (Other)
  Sender: FDA-Public Use
  Company Number: RO-009507513-2006ROM003732

PATIENT
  Sex: Female

DRUGS (4)
  1. NASONEX [Suspect]
     Active Substance: MOMETASONE FUROATE
     Indication: ANTIALLERGIC THERAPY
     Dosage: UNK
  2. ZINNAT (CEFUROXIME AXETIL) [Suspect]
     Active Substance: CEFUROXIME AXETIL
     Indication: PRODUCT USED FOR UNKNOWN INDICATION
     Dosage: UNK
  3. XYZAL [Suspect]
     Active Substance: LEVOCETIRIZINE DIHYDROCHLORIDE
     Indication: ANTIALLERGIC THERAPY
     Dosage: UNK
  4. AUGMENTIN [Suspect]
     Active Substance: AMOXICILLIN\CLAVULANATE POTASSIUM
     Indication: PRODUCT USED FOR UNKNOWN INDICATION
     Dosage: UNK

REACTIONS (10)
  - Dyspnoea [Unknown]
  - Drug ineffective [Unknown]
  - Rhinitis [Recovered/Resolved]
  - Suffocation feeling [Recovered/Resolved]
  - Influenza like illness [Unknown]
  - Drug hypersensitivity [Unknown]
  - Swelling [Unknown]
  - Anaphylactic shock [Recovered/Resolved]
  - Urticaria [Unknown]
  - Ill-defined disorder [Unknown]
